FAERS Safety Report 13131614 (Version 1)
Quarter: 2017Q1

REPORT INFORMATION
  Report Type: Spontaneous
  Country: US (occurrence: US)
  Receive Date: 20170119
  Receipt Date: 20170119
  Transmission Date: 20170428
  Serious: Yes (Other)
  Sender: FDA-Public Use
  Company Number: US-MALLINCKRODT-T201700070

PATIENT
  Age: 18 Year
  Sex: Female

DRUGS (3)
  1. H.P. ACTHAR [Suspect]
     Active Substance: CORTICOTROPIN
     Indication: DYSPNOEA
     Dosage: 80 UNITS/ML, TWICE A WEEK, DOSE UNKNOWN
     Route: 065
     Dates: start: 2016
  2. H.P. ACTHAR [Suspect]
     Active Substance: CORTICOTROPIN
     Indication: PLEURISY
     Dosage: 80 UNITS/ML, UNKNOWN DOSE AND FREQUENCY
     Route: 065
     Dates: start: 2016, end: 2016
  3. H.P. ACTHAR [Suspect]
     Active Substance: CORTICOTROPIN
     Indication: SYSTEMIC LUPUS ERYTHEMATOSUS
     Dosage: 80 UNITS/ML, TWICE A WEEK, DOSE UNKNOWN
     Route: 065
     Dates: start: 201603, end: 2016

REACTIONS (4)
  - Hyperaesthesia [Unknown]
  - Fibromyalgia [Unknown]
  - Pain of skin [Unknown]
  - Headache [Unknown]

NARRATIVE: CASE EVENT DATE: 201603
